FAERS Safety Report 9729712 (Version 2)
Quarter: 2015Q3

REPORT INFORMATION
  Report Type: Spontaneous
  Country: US (occurrence: US)
  Receive Date: 20131204
  Receipt Date: 20150804
  Transmission Date: 20151125
  Serious: No
  Sender: FDA-Public Use
  Company Number: US-GILEAD-2009-0021750

PATIENT
  Age: 53 Year
  Sex: Male
  Weight: 105.23 kg

DRUGS (10)
  1. LISINOPRIL. [Concomitant]
     Active Substance: LISINOPRIL
  2. PREVACID [Concomitant]
     Active Substance: LANSOPRAZOLE
  3. TRIAMTERENE. [Concomitant]
     Active Substance: TRIAMTERENE
  4. LETAIRIS [Suspect]
     Active Substance: AMBRISENTAN
     Indication: PULMONARY ARTERIAL HYPERTENSION
     Route: 048
     Dates: start: 20090429
  5. GLUCOPHAGE [Concomitant]
     Active Substance: METFORMIN HYDROCHLORIDE
  6. METOCLOPRAMIDE. [Concomitant]
     Active Substance: METOCLOPRAMIDE
  7. LOVASTATIN. [Concomitant]
     Active Substance: LOVASTATIN
  8. LORAZEPAM. [Concomitant]
     Active Substance: LORAZEPAM
  9. COUMADIN [Concomitant]
     Active Substance: WARFARIN SODIUM
  10. GLIPIZIDE. [Concomitant]
     Active Substance: GLIPIZIDE

REACTIONS (1)
  - Hypotension [Unknown]

NARRATIVE: CASE EVENT DATE: 200904
